FAERS Safety Report 10705271 (Version 4)
Quarter: 2015Q1

REPORT INFORMATION
  Report Type: Spontaneous
  Country: US (occurrence: US)
  Receive Date: 20150112
  Receipt Date: 20150203
  Transmission Date: 20150721
  Serious: No
  Sender: FDA-Public Use
  Company Number: US-BRISTOL-MYERS SQUIBB COMPANY-BMS-2014-001413

PATIENT
  Sex: Male

DRUGS (2)
  1. SPRYCEL [Suspect]
     Active Substance: DASATINIB
     Indication: CHRONIC MYELOID LEUKAEMIA
     Dosage: 100 MG, QD
     Route: 048
     Dates: start: 20141114
  2. SPRYCEL [Suspect]
     Active Substance: DASATINIB
     Dosage: 100 MG

REACTIONS (8)
  - Fluid retention [Unknown]
  - Fatigue [Unknown]
  - Back pain [Unknown]
  - Chills [Unknown]
  - Nausea [Unknown]
  - Neck pain [Unknown]
  - Musculoskeletal pain [Unknown]
  - Pyrexia [Unknown]
